FAERS Safety Report 17408203 (Version 2)
Quarter: 2020Q1

REPORT INFORMATION
  Report Type: Spontaneous
  Country: ES (occurrence: ES)
  Receive Date: 20200212
  Receipt Date: 20200226
  Transmission Date: 20200409
  Serious: No
  Sender: FDA-Public Use
  Company Number: ES-JNJFOC-20200213185

PATIENT
  Age: 58 Year

DRUGS (2)
  1. VARENICLINE [Concomitant]
     Active Substance: VARENICLINE
     Route: 048
  2. STELARA [Suspect]
     Active Substance: USTEKINUMAB
     Indication: PSORIASIS
     Route: 058
     Dates: start: 2000

REACTIONS (1)
  - Antinuclear antibody increased [Not Recovered/Not Resolved]

NARRATIVE: CASE EVENT DATE: 201811
